FAERS Safety Report 7277949 (Version 6)
Quarter: 2013Q3

REPORT INFORMATION
  Report Type: Spontaneous
  Country: US (occurrence: US)
  Receive Date: 20100212
  Receipt Date: 20130919
  Transmission Date: 20140515
  Serious: Yes (Hospitalization, Other)
  Sender: FDA-Public Use
  Company Number: US-ROCHE-649888

PATIENT
  Age: 14 Year
  Sex: Male
  Weight: 77.1 kg

DRUGS (4)
  1. ACCUTANE [Suspect]
     Indication: ACNE
     Route: 048
  2. ACCUTANE [Suspect]
     Dosage: 40 MG ONCE DAILY ALTERNATING WITH 80 MG ONCE DAILY EVERY OTHER DAY
     Route: 048
     Dates: start: 19950707, end: 19950906
  3. ACCUTANE [Suspect]
     Route: 048
     Dates: start: 19950907, end: 19951105
  4. ACCUTANE [Suspect]
     Route: 048

REACTIONS (10)
  - Crohn^s disease [Unknown]
  - Small intestinal obstruction [Unknown]
  - Colitis ulcerative [Unknown]
  - Inflammatory bowel disease [Unknown]
  - Small intestinal perforation [Unknown]
  - Anal fistula [Unknown]
  - Anal abscess [Unknown]
  - Depression [Unknown]
  - Blood triglycerides increased [Unknown]
  - Arthritis [Unknown]
